FAERS Safety Report 8424407-0 (Version None)
Quarter: 2012Q2

REPORT INFORMATION
  Report Type: 
  Country: None (occurrence: None)
  Receive Date: 20120608
  Receipt Date: 20110822
  Transmission Date: 20120825
  Serious: No
  Sender: FDA-Public Use
  Company Number: US-ASTRAZENECA-2011SE50181

PATIENT
  Age: 67 Year
  Sex: Female

DRUGS (13)
  1. ZYZAL [Concomitant]
     Indication: HYPERSENSITIVITY
  2. BACLOFEN [Concomitant]
  3. OXYGEN [Concomitant]
  4. ATROVENT [Concomitant]
  5. LEVOTHYROXINE SODIUM [Concomitant]
     Indication: THYROID DISORDER
  6. AMYLODIPINE [Concomitant]
     Indication: HYPERTENSION
  7. CHLORHEXIDINE GLUCONATE [Concomitant]
  8. PULMICORT [Suspect]
     Route: 055
     Dates: end: 20110801
  9. SERTRALINE HYDROCHLORIDE [Concomitant]
     Indication: DEPRESSION
  10. CALCIFEROL [Concomitant]
     Indication: VITAMIN SUPPLEMENTATION
  11. GUIFENESIN [Concomitant]
  12. ALBUTEROL [Concomitant]
  13. DIAZEPAM [Concomitant]
     Indication: ANXIETY

REACTIONS (3)
  - ABNORMAL BEHAVIOUR [None]
  - LETHARGY [None]
  - CIRCUMSTANCE OR INFORMATION CAPABLE OF LEADING TO MEDICATION ERROR [None]
